FAERS Safety Report 7044837-1 (Version None)
Quarter: 2010Q4

REPORT INFORMATION
  Report Type: 
  Country: None (occurrence: None)
  Receive Date: 20101014
  Receipt Date: 20101001
  Transmission Date: 20110411
  Serious: Yes (Hospitalization, Other)
  Sender: FDA-Public Use
  Company Number: PHEH2010US03239

PATIENT
  Sex: Female

DRUGS (8)
  1. EXJADE [Suspect]
     Indication: IRON OVERLOAD
     Dosage: 1500 MG DAILY
     Route: 048
     Dates: start: 20081001
  2. EXJADE [Suspect]
     Indication: SICKLE CELL ANAEMIA
     Dosage: 2000 MG, QD
     Route: 048
  3. HYDROCODONE [Concomitant]
     Dosage: 7.5 MG, BID
  4. TOPAMAX [Concomitant]
     Dosage: 200 MG, BID
  5. DEPAKOTE [Concomitant]
  6. ELAVIL [Concomitant]
  7. TRICYCLIC ANTIDEPRESSANTS [Concomitant]
  8. NORPLANT [Concomitant]

REACTIONS (10)
  - DIARRHOEA [None]
  - FEELING ABNORMAL [None]
  - GLAUCOMA [None]
  - HAEMOLYTIC ANAEMIA [None]
  - JAUNDICE [None]
  - LETHARGY [None]
  - PAIN [None]
  - SEDATION [None]
  - SICKLE CELL ANAEMIA WITH CRISIS [None]
  - WEIGHT DECREASED [None]
